FAERS Safety Report 15079966 (Version 1)
Quarter: 2018Q2

REPORT INFORMATION
  Report Type: Spontaneous
  Country: US (occurrence: US)
  Receive Date: 20180607
  Receipt Date: 20180607
  Transmission Date: 20180711
  Serious: Yes (Other)
  Sender: FDA-Public Use
  Company Number: None

PATIENT
  Age: 63 Year
  Sex: Male
  Weight: 74.25 kg

DRUGS (7)
  1. ASPIRIN 81MG [Concomitant]
     Active Substance: ASPIRIN
     Dates: start: 20180101
  2. EMTRICTABINE/TENOFOVIR [Concomitant]
     Dates: start: 20180101
  3. CARVEDILOL 12.5MG [Concomitant]
     Active Substance: CARVEDILOL
     Dates: start: 20180101
  4. ATOVAQUONE. [Concomitant]
     Active Substance: ATOVAQUONE
     Dates: start: 20180101
  5. RITUXIMAB. [Suspect]
     Active Substance: RITUXIMAB
     Indication: NON-HODGKIN^S LYMPHOMA
     Dosage: ?          OTHER FREQUENCY:ONCE A WEEK;?
     Route: 042
     Dates: start: 20180326, end: 20180507
  6. AMLODIPINE [Concomitant]
     Active Substance: AMLODIPINE BESYLATE
     Dates: start: 20180101
  7. RALTEGRAVIR. [Concomitant]
     Active Substance: RALTEGRAVIR
     Dates: start: 20180101

REACTIONS (1)
  - Hyperglycaemia [None]

NARRATIVE: CASE EVENT DATE: 20180328
